FAERS Safety Report 8822558 (Version 3)
Quarter: 2012Q4

REPORT INFORMATION
  Report Type: 
  Country: US (occurrence: US)
  Receive Date: 20121003
  Receipt Date: 20121116
  Transmission Date: 20130627
  Serious: Yes (Hospitalization)
  Sender: FDA-Public Use
  Company Number: US-BAYER-2012-099037

PATIENT
  Age: 21 Year
  Sex: Female
  Weight: 126.53 kg

DRUGS (19)
  1. YASMIN [Suspect]
     Indication: PREMENSTRUAL SYNDROME
     Dosage: UNK
     Dates: start: 20020801, end: 201110
  2. YASMIN [Suspect]
     Indication: MENSTRUAL CYCLE MANAGEMENT
  3. OCELLA [Suspect]
     Indication: MENORRHAGIA
     Dosage: UNK
     Dates: start: 2002, end: 2011
  4. OCELLA [Suspect]
     Indication: PREMENSTRUAL SYNDROME
  5. OCELLA [Suspect]
     Indication: MENSTRUAL CYCLE MANAGEMENT
  6. FLEXERIL [Concomitant]
  7. CATAFLAM [Concomitant]
  8. OTHER ANTIDEPRESSANTS [Concomitant]
     Indication: DEPRESSION
  9. DOXYCYCLINE [Concomitant]
     Indication: ACNE
  10. VICODIN [Concomitant]
     Indication: BACK PAIN
     Dosage: UNK
     Dates: start: 2011
  11. ULTRAM [Concomitant]
  12. PERCOCET [Concomitant]
     Indication: PAIN BACK
     Dosage: UNK
     Dates: start: 2011, end: 2012
  13. PREDNISONE [Concomitant]
  14. FENTANYL [Concomitant]
  15. ZOFRAN [Concomitant]
  16. DILAUDID [Concomitant]
     Route: 042
  17. PROVERA [Concomitant]
  18. NSAID^S [Concomitant]
  19. MIGRAINE MEDICATIONS [Concomitant]

REACTIONS (15)
  - Cholecystitis chronic [None]
  - Gallbladder disorder [None]
  - Pulmonary embolism [Recovered/Resolved]
  - Thrombosis [None]
  - Emotional distress [None]
  - Pain [None]
  - Injury [Recovered/Resolved]
  - General physical health deterioration [Recovered/Resolved]
  - Pain [Recovered/Resolved]
  - Anxiety [None]
  - Anhedonia [None]
  - Gallbladder pain [None]
  - Depression [None]
  - Migraine [Not Recovered/Not Resolved]
  - Off label use [None]
